FAERS Safety Report 4904069-7 (Version None)
Quarter: 2006Q1

REPORT INFORMATION
  Report Type: 
  Country: None (occurrence: None)
  Receive Date: 20060208
  Receipt Date: 20040708
  Transmission Date: 20060701
  Serious: No
  Sender: FDA-Public Use
  Company Number: US-GLAXOSMITHKLINE-A0517781A

PATIENT
  Age: 36 Year
  Sex: Female
  Weight: 59.1 kg

DRUGS (5)
  1. PAXIL [Suspect]
     Indication: DEPRESSION
     Route: 048
     Dates: start: 20040414, end: 20040708
  2. THYROGEN [Concomitant]
     Route: 065
  3. RESTORIL [Concomitant]
     Indication: INSOMNIA
     Route: 048
     Dates: start: 20040303
  4. ATIVAN [Concomitant]
     Indication: ANXIETY
     Route: 048
     Dates: start: 20040303
  5. SYNTHROID [Concomitant]
     Indication: HYPOTHYROIDISM
     Route: 048
     Dates: start: 19940101

REACTIONS (1)
  - BLOOD THYROID STIMULATING HORMONE DECREASED [None]
